FAERS Safety Report 6718318-6 (Version None)
Quarter: 2010Q2

REPORT INFORMATION
  Report Type: 
  Country: None (occurrence: None)
  Receive Date: 20100510
  Receipt Date: 20100426
  Transmission Date: 20101027
  Serious: Yes (Life-Threatening, Hospitalization)
  Sender: FDA-Public Use
  Company Number: DE-AMGEN-US408071

PATIENT
  Sex: Male

DRUGS (17)
  1. ENBREL [Suspect]
     Indication: POLYARTHRITIS
     Dosage: 25MG 1X1 WEEK FROM AN UNKNOWN DATE, IN 2010 PAUSE AND THEN RESTART WITH 25MG 1X1WEEK
     Route: 058
  2. PANTOZOL [Concomitant]
  3. DECORTIN [Concomitant]
     Indication: POLYARTHRITIS
  4. IBUPROFEN TABLETS [Concomitant]
  5. ACETYLSALICYLIC ACID [Concomitant]
     Dosage: 100 MG (FREQUENCY UNKNOWN)
     Dates: end: 20100101
  6. METFORMIN HYDROCHLORIDE [Concomitant]
     Dosage: FROM AN UNKNOWN DATE UNKNOWN DOSE REGIMEN; PAUSE IN 2010 AND THEN RESTART WITH 850 MG 2X1 DAY
  7. DILTIAZEM HCL [Concomitant]
  8. ENALAPRIL MALEATE [Concomitant]
  9. IDEOS [Concomitant]
     Route: 054
  10. FOSAMAX [Concomitant]
  11. FOLIC ACID [Concomitant]
  12. FERRO SANOL [Concomitant]
  13. LYRICA [Concomitant]
     Dosage: 25 MG (FREQUENCY UNKNOWN)
  14. HUMALOG [Concomitant]
     Dosage: 18 IU ACCORDING TO BLOOD SUGAR VALUE
  15. PROTAPHAN [Concomitant]
  16. METHOTREXATE [Concomitant]
     Indication: POLYARTHRITIS
     Dosage: 15 MG (FREQUENCY UNKNOWN)
     Dates: end: 20100101
  17. SPIRONOLACTONE [Concomitant]

REACTIONS (3)
  - C-REACTIVE PROTEIN INCREASED [None]
  - HEPATIC CIRRHOSIS [None]
  - MIXED HEPATOCELLULAR CHOLANGIOCARCINOMA [None]
